FAERS Safety Report 6001405-8 (Version None)
Quarter: 2008Q4

REPORT INFORMATION
  Report Type: 
  Country: None (occurrence: None)
  Receive Date: 20081215
  Receipt Date: 20081204
  Transmission Date: 20090506
  Serious: Yes (Hospitalization, Other)
  Sender: FDA-Public Use
  Company Number: DE-ELI_LILLY_AND_COMPANY-DE200810003057

PATIENT
  Sex: Female

DRUGS (21)
  1. CYMBALTA [Suspect]
     Indication: PAIN
     Dosage: 30 MG, UNKNOWN
     Route: 048
     Dates: start: 20081001
  2. TRAMADOL HCL [Concomitant]
  3. NOVALGIN [Concomitant]
  4. DICLAC [Concomitant]
     Dosage: UNK, EACH MORNING
  5. DICLAC [Concomitant]
     Dosage: 75 MG, 2/D
  6. RAMIPRIL [Concomitant]
     Dosage: 5 MG, EACH MORNING
  7. RAMIPRIL [Concomitant]
     Dosage: 5 MG, 2/D
  8. BISOPROLOL FUMARATE [Concomitant]
     Dosage: 2.5 MG, EACH MORNING
  9. AMLODIPINE [Concomitant]
     Dosage: UNK, EACH EVENING
  10. AMLODIPINE [Concomitant]
     Dosage: 5 MG, 2/D
  11. AGGRENOX [Concomitant]
     Dosage: 25MG/200MG 2/D
  12. MEGLUCON [Concomitant]
     Dosage: 850 MG, EACH MORNING
  13. SIMVASTATIN [Concomitant]
     Dosage: 20 MG, EACH EVENING
  14. ZOPICLON [Concomitant]
     Dosage: 7.5 MG, EACH EVENING
  15. OMEP [Concomitant]
     Dosage: 20 MG, EACH EVENING
  16. VITAMIN B-12 [Concomitant]
     Dosage: UNK, DAILY (1/D)
  17. CALCIUM [Concomitant]
     Dosage: UNK, DAILY (1/D)
  18. BONIVA [Concomitant]
  19. PANTOZOL [Concomitant]
     Dosage: 40 MG, EACH MORNING
  20. METOCLOPRAMIDE [Concomitant]
  21. CALCIVIT D [Concomitant]
     Dosage: UNK, EACH MORNING

REACTIONS (17)
  - ATRIOVENTRICULAR BLOCK SECOND DEGREE [None]
  - CARDIOMEGALY [None]
  - DEHYDRATION [None]
  - DIZZINESS [None]
  - DYSARTHRIA [None]
  - ELECTROLYTE IMBALANCE [None]
  - FACIAL PARESIS [None]
  - GAIT DISTURBANCE [None]
  - HYPOKALAEMIA [None]
  - HYPONATRAEMIA [None]
  - LACUNAR INFARCTION [None]
  - NAUSEA [None]
  - RED BLOOD CELLS URINE POSITIVE [None]
  - SUPRAVENTRICULAR EXTRASYSTOLES [None]
  - URINE KETONE BODY PRESENT [None]
  - VOMITING [None]
  - WHITE BLOOD CELLS URINE POSITIVE [None]
